FAERS Safety Report 25756949 (Version 2)
Quarter: 2025Q3

REPORT INFORMATION
  Report Type: Spontaneous
  Country: JP (occurrence: JP)
  Receive Date: 20250903
  Receipt Date: 20250912
  Transmission Date: 20251021
  Serious: Yes (Other)
  Sender: MERCK SHARP & DOHME LLC
  Company Number: JP-009507513-2325232

PATIENT
  Age: 6 Decade
  Sex: Male

DRUGS (3)
  1. PEMBROLIZUMAB [Suspect]
     Active Substance: PEMBROLIZUMAB
     Indication: Nasopharyngeal cancer
  2. SELEGILINE HYDROCHLORIDE [Suspect]
     Active Substance: SELEGILINE HYDROCHLORIDE
     Indication: Nasopharyngeal cancer
  3. SELEGILINE HYDROCHLORIDE [Suspect]
     Active Substance: SELEGILINE HYDROCHLORIDE
     Indication: Nasopharyngeal cancer

REACTIONS (5)
  - Radiotherapy [Unknown]
  - Blood corticotrophin decreased [Unknown]
  - Cortisol abnormal [Unknown]
  - Arthralgia [Unknown]
  - Thyroid disorder [Unknown]
